FAERS Safety Report 15969509 (Version 1)
Quarter: 2019Q1

REPORT INFORMATION
  Report Type: Spontaneous
  Country: US (occurrence: US)
  Receive Date: 20190215
  Receipt Date: 20190215
  Transmission Date: 20190418
  Serious: Yes (Other)
  Sender: FDA-Public Use
  Company Number: US-JNJFOC-20190211216

PATIENT
  Sex: Female
  Weight: 108.86 kg

DRUGS (6)
  1. LABETALOL [Concomitant]
     Active Substance: LABETALOL\LABETALOL HYDROCHLORIDE
     Indication: BLOOD PRESSURE MEASUREMENT
     Route: 065
  2. ATARAX [Concomitant]
     Active Substance: HYDROXYZINE HYDROCHLORIDE
     Route: 065
  3. TERAZOL [Suspect]
     Active Substance: TERCONAZOLE
     Indication: CYSTITIS INTERSTITIAL
     Route: 061
  4. HYDRALAZINE [Concomitant]
     Active Substance: HYDRALAZINE HYDROCHLORIDE
     Indication: BLOOD PRESSURE MEASUREMENT
     Route: 065
  5. LEVOCETIRIZINE [Concomitant]
     Active Substance: LEVOCETIRIZINE
     Route: 065
  6. TERAZOL [Suspect]
     Active Substance: TERCONAZOLE
     Indication: FUNGAL INFECTION
     Route: 061

REACTIONS (3)
  - Mast cell activation syndrome [Unknown]
  - Rosacea [Unknown]
  - Rotator cuff syndrome [Recovered/Resolved]
